FAERS Safety Report 9031339 (Version 1)
Quarter: 2013Q1

REPORT INFORMATION
  Report Type: Spontaneous
  Country: US (occurrence: US)
  Receive Date: 20130124
  Receipt Date: 20130124
  Transmission Date: 20140127
  Serious: Yes (Other)
  Sender: FDA-Public Use
  Company Number: US-ASTRAZENECA-2013SE04179

PATIENT
  Age: 59 Year
  Sex: Female
  Weight: 79.4 kg

DRUGS (13)
  1. NEXIUM [Suspect]
     Indication: GASTROOESOPHAGEAL REFLUX DISEASE
     Route: 048
     Dates: start: 2008, end: 2008
  2. NEXIUM [Suspect]
     Indication: GASTROOESOPHAGEAL REFLUX DISEASE
     Route: 048
     Dates: start: 201212, end: 20130116
  3. NEXIUM [Suspect]
     Indication: GASTROOESOPHAGEAL REFLUX DISEASE
     Route: 048
     Dates: start: 20130116
  4. CRESTOR [Suspect]
     Indication: BLOOD CHOLESTEROL INCREASED
     Route: 048
     Dates: start: 201209
  5. SYNTHROID [Concomitant]
     Indication: THYROID DISORDER
     Route: 048
  6. CYTOMEL [Concomitant]
     Indication: THYROID DISORDER
     Route: 048
  7. BETAXOLOL [Concomitant]
     Indication: ARRHYTHMIA
     Route: 048
  8. NORVASC [Concomitant]
     Indication: BLOOD PRESSURE ABNORMAL
     Route: 048
  9. MICRO K [Concomitant]
     Indication: SUPPLEMENTATION THERAPY
     Route: 048
  10. BABY ASPIRIN [Concomitant]
     Indication: ANTICOAGULANT THERAPY
     Route: 048
  11. DIAZEPAM [Concomitant]
     Indication: MENIERE^S DISEASE
     Dosage: 5 MG BID PRN
     Route: 048
  12. TRIAMTERENE [Concomitant]
     Indication: FLUID IMBALANCE
     Dosage: 37.5/ 25 MG
     Route: 048
  13. LOVAZA [Concomitant]
     Indication: HYPERLIPIDAEMIA
     Route: 048

REACTIONS (6)
  - Upper limb fracture [Unknown]
  - Fall [Unknown]
  - Gastritis [Unknown]
  - Blood cholesterol increased [Unknown]
  - Off label use [Unknown]
  - Intentional drug misuse [Unknown]
